FAERS Safety Report 7360280-X (Version None)
Quarter: 2011Q1

REPORT INFORMATION
  Report Type: 
  Country: None (occurrence: None)
  Receive Date: 20110318
  Receipt Date: 20110308
  Transmission Date: 20110831
  Serious: Yes (Other)
  Sender: FDA-Public Use
  Company Number: US-JNJFOC-20110303868

PATIENT
  Age: 28 Year
  Sex: Female

DRUGS (12)
  1. CYTARABINE [Suspect]
     Indication: BURKITT'S LYMPHOMA
     Route: 037
  2. ETOPOSIDE [Suspect]
     Indication: BURKITT'S LYMPHOMA
     Route: 042
  3. VINCRISTINE [Suspect]
     Indication: BURKITT'S LYMPHOMA
     Route: 065
  4. RITUXIMAB [Suspect]
     Indication: BURKITT'S LYMPHOMA
     Route: 065
  5. CYCLOPHOSPHAMIDE [Suspect]
     Route: 042
  6. PREDNISONE TAB [Suspect]
     Indication: BURKITT'S LYMPHOMA
     Route: 048
  7. CYTARABINE [Suspect]
     Route: 037
  8. MESNA [Suspect]
     Indication: BURKITT'S LYMPHOMA
     Route: 042
  9. CYCLOPHOSPHAMIDE [Suspect]
     Indication: BURKITT'S LYMPHOMA
     Route: 042
  10. IFOSFAMIDE [Suspect]
     Indication: BURKITT'S LYMPHOMA
     Route: 042
  11. DOXORUBICIN HCL [Suspect]
     Indication: BURKITT'S LYMPHOMA
     Route: 042
  12. CYTARABINE [Suspect]
     Dosage: 3.2 G/M2 GIVEN AS 4 DOSES EVERY 12 HOURS
     Route: 042

REACTIONS (7)
  - EROSIVE OESOPHAGITIS [None]
  - INTRA-UTERINE DEATH [None]
  - VOMITING [None]
  - NAUSEA [None]
  - DRUG EXPOSURE DURING PREGNANCY [None]
  - FEBRILE NEUTROPENIA [None]
  - BLOOD LACTATE DEHYDROGENASE INCREASED [None]
